FAERS Safety Report 10056040 (Version 3)
Quarter: 2014Q3

REPORT INFORMATION
  Report Type: Spontaneous
  Country: JP (occurrence: JP)
  Receive Date: 20140403
  Receipt Date: 20140811
  Transmission Date: 20150326
  Serious: Yes (Other)
  Sender: FDA-Public Use
  Company Number: JP-PFIZER INC-2014093486

PATIENT
  Age: 64 Year
  Sex: Male
  Weight: 69 kg

DRUGS (6)
  1. CELECOX [Suspect]
     Active Substance: CELECOXIB
     Indication: RHEUMATOID ARTHRITIS
     Dosage: UNK
     Route: 065
  2. ZETIA [Concomitant]
     Active Substance: EZETIMIBE
     Dosage: UNK
     Dates: start: 20110711
  3. CONIEL [Concomitant]
     Active Substance: BENIDIPINE HYDROCHLORIDE
     Dosage: UNK
     Dates: start: 20110701
  4. CELECOX [Suspect]
     Active Substance: CELECOXIB
     Dosage: 100 MG, 2X/DAY
     Route: 048
     Dates: start: 20090717
  5. MICARDIS [Concomitant]
     Active Substance: TELMISARTAN
     Dosage: UNK
     Dates: start: 20110131
  6. BAYASPIRIN [Suspect]
     Active Substance: ASPIRIN
     Indication: ACUTE MYOCARDIAL INFARCTION
     Dosage: 100 MG, 1X/DAY
     Route: 048
     Dates: start: 20060816, end: 20130701

REACTIONS (2)
  - Duodenal ulcer [Recovered/Resolved]
  - Duodenal stenosis [Recovered/Resolved]

NARRATIVE: CASE EVENT DATE: 20130701
